FAERS Safety Report 6390176-1 (Version None)
Quarter: 2009Q4

REPORT INFORMATION
  Report Type: 
  Country: None (occurrence: None)
  Receive Date: 20091003
  Receipt Date: 20090924
  Transmission Date: 20100525
  Serious: Yes (Hospitalization, Other)
  Sender: FDA-Public Use
  Company Number: 2009SP021083

PATIENT
  Age: 44 Year
  Sex: Male

DRUGS (2)
  1. PEG-INTRON [Suspect]
     Indication: HEPATITIS C
     Dosage: ; SC
     Route: 058
     Dates: end: 20090603
  2. RIBAVIRIN [Suspect]
     Indication: HEPATITIS C
     Dosage: ; PO
     Route: 048
     Dates: end: 20090603

REACTIONS (8)
  - ABDOMINAL DISCOMFORT [None]
  - FLUID OVERLOAD [None]
  - PERICARDIAL EFFUSION [None]
  - PLEURAL EFFUSION [None]
  - PULMONARY ARTERIAL HYPERTENSION [None]
  - PULMONARY TOXICITY [None]
  - RIGHT VENTRICULAR FAILURE [None]
  - THERAPEUTIC AGENT TOXICITY [None]
